FAERS Safety Report 5029146-4 (Version None)
Quarter: 2006Q2

REPORT INFORMATION
  Report Type: 
  Country: None (occurrence: None)
  Receive Date: 20060613
  Receipt Date: 20060602
  Transmission Date: 20061013
  Serious: Yes (Disabling, Other)
  Sender: FDA-Public Use
  Company Number: 2005-07-1546

PATIENT
  Age: 64 Year
  Sex: Female
  Weight: 57 kg

DRUGS (9)
  1. PEG-INTRON [Suspect]
     Indication: HEPATITIS C
     Dosage: 80-80 MCG, QW; SUBCUTANEOUS (SEE IMAGE)
     Route: 058
     Dates: start: 20050527, end: 20060317
  2. REBETOL [Suspect]
     Indication: HEPATITIS C
     Dosage: 600-200 MG; ORAL
     Route: 048
     Dates: start: 20050527, end: 20060317
  3. BASEN TABLETS [Concomitant]
  4. BLOPRESS (CANDESARTAN CILEXETIL) TABLETS [Concomitant]
  5. BETAXOLOL HYDROCHLORIDE TABLETS [Concomitant]
  6. LIPITOR [Concomitant]
  7. EUGLUCON TABLETS [Concomitant]
  8. ACTOS (PIOGLITAZONE HCL) TABLETS [Concomitant]
  9. URSO TABLETS [Concomitant]

REACTIONS (12)
  - ANAEMIA [None]
  - DECREASED APPETITE [None]
  - DIABETIC RETINOPATHY [None]
  - DIZZINESS [None]
  - MACULAR OEDEMA [None]
  - OTITIS MEDIA ACUTE [None]
  - OTORRHOEA [None]
  - PLATELET COUNT DECREASED [None]
  - RETINAL HAEMORRHAGE [None]
  - TINNITUS [None]
  - VISION BLURRED [None]
  - VISUAL ACUITY REDUCED [None]
